FAERS Safety Report 5581228-4 (Version None)
Quarter: 2007Q4

REPORT INFORMATION
  Report Type: 
  Country: None (occurrence: None)
  Receive Date: 20071226
  Receipt Date: 20071214
  Transmission Date: 20080405
  Serious: Yes (Hospitalization)
  Sender: FDA-Public Use
  Company Number: DSJ-2007-10608

PATIENT
  Age: 5 Decade
  Sex: Female

DRUGS (4)
  1. OLMESARTAN MEDOXOMIL [Suspect]
     Indication: HYPERTENSION
     Dosage: 20 MG , PER ORAL
     Route: 048
     Dates: start: 20071110, end: 20071110
  2. LOXONIN (LOXOPROFEN SODIUM)(LOXOPROFEN SODIUM) [Concomitant]
  3. PA (CAFFEINE, SALICYLAMIDE, PARACETAMOL, PROMETHAZINE METHYLENE DISALI [Concomitant]
  4. ASTOMIN (DIMEMORFAN PHOSPHATE) (DIMEMORFAN PHOSPHATE) [Concomitant]

REACTIONS (1)
  - ANAPHYLACTIC SHOCK [None]
